FAERS Safety Report 19467391 (Version 1)
Quarter: 2021Q2

REPORT INFORMATION
  Report Type: Spontaneous
  Country: US (occurrence: US)
  Receive Date: 20210626
  Receipt Date: 20210626
  Transmission Date: 20210717
  Serious: Yes (Life-Threatening)
  Sender: FDA-Public Use
  Company Number: None

PATIENT
  Age: 71 Year
  Sex: Male
  Weight: 83.25 kg

DRUGS (3)
  1. TRAMADOL, 50MG TABLETS [Suspect]
     Active Substance: TRAMADOL HYDROCHLORIDE
     Indication: PROCEDURAL PAIN
     Dosage: ?          QUANTITY:1 TABLET(S);?
     Route: 048
  2. ATORVASTATIN 10MG [Concomitant]
     Active Substance: ATORVASTATIN
  3. AMOX ? CLAV  875MG [Concomitant]

REACTIONS (8)
  - Food interaction [None]
  - Dyspnoea [None]
  - Drug interaction [None]
  - Gastrooesophageal reflux disease [None]
  - Gastrointestinal sounds abnormal [None]
  - Throat irritation [None]
  - Chest pain [None]
  - Wheezing [None]

NARRATIVE: CASE EVENT DATE: 20210626
